FAERS Safety Report 4304559-4 (Version None)
Quarter: 2004Q1

REPORT INFORMATION
  Report Type: 
  Country: None (occurrence: None)
  Receive Date: 20040226
  Receipt Date: 20031202
  Transmission Date: 20041129
  Serious: Yes (Hospitalization)
  Sender: FDA-Public Use
  Company Number: 200410068US

PATIENT
  Sex: Male

DRUGS (5)
  1. ARAVA [Suspect]
     Indication: RHEUMATOID ARTHRITIS
     Route: 048
     Dates: start: 19990101, end: 19990201
  2. PREDNISONE [Concomitant]
  3. LEVAQUIN [Concomitant]
  4. CALCIUM [Concomitant]
     Dosage: DOSE: UNKNOWN
  5. AUGMENTIN [Concomitant]
     Indication: SINUSITIS
     Dosage: DOSE: UNK
     Dates: start: 19990201, end: 19990201

REACTIONS (6)
  - ASTHENIA [None]
  - DIARRHOEA [None]
  - DRUG ERUPTION [None]
  - LIVER FUNCTION TEST ABNORMAL [None]
  - STEVENS-JOHNSON SYNDROME [None]
  - WEIGHT DECREASED [None]
